FAERS Safety Report 6809329-0 (Version None)
Quarter: 2010Q2

REPORT INFORMATION
  Report Type: 
  Country: None (occurrence: None)
  Receive Date: 20100630
  Receipt Date: 20100617
  Transmission Date: 20101027
  Serious: Yes (Other)
  Sender: FDA-Public Use
  Company Number: US-ELI_LILLY_AND_COMPANY-US201006005428

PATIENT
  Sex: Female

DRUGS (2)
  1. PROZAC [Suspect]
     Indication: DEPRESSION
     Dosage: 20 MG, DAILY (1/D)
  2. PROZAC [Suspect]
     Dosage: 20 MG, 2/D

REACTIONS (8)
  - ARTHROPATHY [None]
  - BACK PAIN [None]
  - BLOOD GLUCOSE INCREASED [None]
  - DEPRESSION [None]
  - DRUG EFFECT DECREASED [None]
  - GLUCOSE TOLERANCE IMPAIRED [None]
  - IRRITABLE BOWEL SYNDROME [None]
  - WEIGHT INCREASED [None]
